FAERS Safety Report 6260750-1 (Version None)
Quarter: 2009Q3

REPORT INFORMATION
  Report Type: 
  Country: None (occurrence: None)
  Receive Date: 20090706
  Receipt Date: 20090619
  Transmission Date: 20100115
  Serious: Yes (Death)
  Sender: FDA-Public Use
  Company Number: 2009AL000603

PATIENT
  Age: 78 Year
  Sex: Male

DRUGS (2)
  1. DIGOXIN [Suspect]
     Dosage: PO
     Route: 048
  2. ACETYLCYSTEINE [Concomitant]

REACTIONS (8)
  - ANXIETY [None]
  - CARDIAC DISORDER [None]
  - ECONOMIC PROBLEM [None]
  - FAMILY STRESS [None]
  - FEAR [None]
  - MULTIPLE INJURIES [None]
  - SOCIAL PROBLEM [None]
  - UNEVALUABLE EVENT [None]
